FAERS Safety Report 9366826 (Version 1)
Quarter: 2013Q2

REPORT INFORMATION
  Report Type: Spontaneous
  Country: US (occurrence: US)
  Receive Date: 20130625
  Receipt Date: 20130625
  Transmission Date: 20140414
  Serious: Yes (Hospitalization)
  Sender: FDA-Public Use
  Company Number: US-GLAXOSMITHKLINE-A0700309A

PATIENT
  Sex: Female

DRUGS (18)
  1. AVANDIA [Suspect]
     Indication: TYPE 2 DIABETES MELLITUS
     Dosage: 8MG PER DAY
     Route: 048
     Dates: start: 20020913, end: 20070115
  2. METFORMIN [Concomitant]
  3. LANTUS [Concomitant]
  4. SYNTHROID [Concomitant]
  5. VYTORIN [Concomitant]
  6. LOPRESSOR [Concomitant]
  7. LIPID [Concomitant]
  8. IMDUR [Concomitant]
  9. ATIVAN [Concomitant]
  10. DIAVAN [Concomitant]
  11. RELAFEN [Concomitant]
  12. ASPIRIN [Concomitant]
  13. MULTIVITAMIN [Concomitant]
  14. IRON [Concomitant]
  15. CALCIUM + D [Concomitant]
  16. LIPITOR [Concomitant]
  17. NITROGLYCERIN [Concomitant]
  18. LASIX [Concomitant]

REACTIONS (7)
  - Cerebrovascular accident [Not Recovered/Not Resolved]
  - Myocardial infarction [Unknown]
  - Weight increased [Unknown]
  - Fluid retention [Unknown]
  - Arterial therapeutic procedure [Unknown]
  - Coronary artery bypass [Unknown]
  - Dyspnoea [Unknown]
